FAERS Safety Report 14008974 (Version 5)
Quarter: 2025Q1

REPORT INFORMATION
  Report Type: Spontaneous
  Country: ES (occurrence: ES)
  Receive Date: 20170925
  Receipt Date: 20250324
  Transmission Date: 20250408
  Serious: Yes (Hospitalization, Other)
  Sender: AMGEN
  Company Number: ES-AMGEN-ESPSP2017142442

PATIENT
  Age: 76 Year
  Sex: Female

DRUGS (9)
  1. PROLIA [Suspect]
     Active Substance: DENOSUMAB
     Indication: Osteoporosis
     Dosage: 60 MILLIGRAM, Q6MO
     Route: 065
     Dates: start: 20151202
  2. PROLIA [Suspect]
     Active Substance: DENOSUMAB
     Indication: Cervix cancer metastatic
     Route: 065
  3. PROLIA [Suspect]
     Active Substance: DENOSUMAB
     Route: 065
  4. PROLIA [Suspect]
     Active Substance: DENOSUMAB
     Route: 065
  5. ALPRAZOLAM [Concomitant]
     Active Substance: ALPRAZOLAM
  6. EBASTINE [Concomitant]
     Active Substance: EBASTINE
  7. DETRUSITOL [Concomitant]
     Active Substance: TOLTERODINE TARTRATE
  8. LEVOSULPIRIDE [Concomitant]
     Active Substance: LEVOSULPIRIDE
  9. OMEPRAZOLE [Concomitant]
     Active Substance: OMEPRAZOLE

REACTIONS (11)
  - Lupus-like syndrome [Recovering/Resolving]
  - Diplopia [Unknown]
  - Atelectasis [Unknown]
  - Ascites [Unknown]
  - Hepatic cyst [Unknown]
  - Thrombocytosis [Unknown]
  - Iron deficiency [Unknown]
  - Pain [Unknown]
  - Pain in extremity [Unknown]
  - Pyrexia [Unknown]
  - Asthenia [Unknown]

NARRATIVE: CASE EVENT DATE: 20150101
